FAERS Safety Report 5049219-X (Version None)
Quarter: 2006Q2

REPORT INFORMATION
  Report Type: 
  Country: None (occurrence: None)
  Receive Date: 20060601
  Receipt Date: 20060303
  Transmission Date: 20061013
  Serious: No
  Sender: FDA-Public Use
  Company Number: US200603001267

PATIENT
  Age: 57 Year
  Sex: Female

DRUGS (6)
  1. CYMBALTA [Suspect]
     Indication: DRUG USE FOR UNKNOWN INDICATION
  2. HUMATROPE [Suspect]
     Indication: GROWTH HORMONE DEFICIENCY
     Dates: start: 20051221
  3. EZETIMIBE (EZETIMIBE) [Concomitant]
  4. SIMVASTATIN [Concomitant]
  5. ZYRTEC [Concomitant]
  6. METFORMIN (METFORMIN) [Concomitant]

REACTIONS (1)
  - SKIN HYPERPIGMENTATION [None]
